FAERS Safety Report 4677752-9 (Version None)
Quarter: 2005Q2

REPORT INFORMATION
  Report Type: 
  Country: None (occurrence: None)
  Receive Date: 20050527
  Receipt Date: 20050527
  Transmission Date: 20051028
  Serious: Yes (Hospitalization)
  Sender: FDA-Public Use
  Company Number: None

PATIENT
  Sex: Male

DRUGS (4)
  1. CETUXIMAB [Suspect]
     Indication: NEOPLASM MALIGNANT
     Dosage: 250 MG/M2 IV WEEKLY
     Route: 042
     Dates: start: 20050329, end: 20050517
  2. PACLITAXEL [Suspect]
     Indication: NEOPLASM MALIGNANT
     Dosage: 40 MG/M2 IV WEEKLY
     Route: 042
     Dates: start: 20050503, end: 20050517
  3. CARBOPLATIN [Suspect]
     Indication: NEOPLASM MALIGNANT
     Dosage: 1.0 AUC IV WEEKLY
     Route: 042
     Dates: start: 20050503, end: 20050517
  4. RADIATION [Suspect]
     Indication: NEOPLASM MALIGNANT
     Dosage: 180 C GY PER DAY
     Dates: start: 20050503, end: 20050523

REACTIONS (4)
  - INCREASED UPPER AIRWAY SECRETION [None]
  - PHARYNGOLARYNGEAL PAIN [None]
  - PNEUMONIA ASPIRATION [None]
  - TRACHEAL DISORDER [None]
